FAERS Safety Report 11932977 (Version 1)
Quarter: 2016Q1

REPORT INFORMATION
  Report Type: Spontaneous
  Country: US (occurrence: US)
  Receive Date: 20160120
  Receipt Date: 20160120
  Transmission Date: 20160526
  Serious: No
  Sender: FDA-Public Use
  Company Number: US-009507513-1601USA005341

PATIENT
  Sex: Female

DRUGS (4)
  1. BONIVA [Suspect]
     Active Substance: IBANDRONATE SODIUM
  2. PROLIA [Suspect]
     Active Substance: DENOSUMAB
  3. RECLAST [Suspect]
     Active Substance: ZOLEDRONIC ACID
  4. FOSAMAX [Suspect]
     Active Substance: ALENDRONATE SODIUM
     Route: 048

REACTIONS (4)
  - Drug ineffective [Unknown]
  - Adverse event [Unknown]
  - Glucose tolerance impaired [Unknown]
  - Depression [Unknown]
